FAERS Safety Report 21234027 (Version 3)
Quarter: 2022Q3

REPORT INFORMATION
  Report Type: Report from Study
  Country: EC (occurrence: EC)
  Receive Date: 20220819
  Receipt Date: 20220926
  Transmission Date: 20221027
  Serious: Yes (Other)
  Sender: FDA-Public Use
  Company Number: EC-BAYER-2022A114720

PATIENT
  Age: 60 Year
  Sex: Female

DRUGS (3)
  1. NEXAVAR [Suspect]
     Active Substance: SORAFENIB
     Indication: Hepatocellular carcinoma
     Dosage: DAILY DOSE 800 MG
     Dates: start: 20211005, end: 20220720
  2. NEXAVAR [Suspect]
     Active Substance: SORAFENIB
     Indication: Hepatocellular carcinoma
     Dosage: 400 MG, QD
     Dates: start: 20220721, end: 20220820
  3. SILVER SULFADIAZENE [Concomitant]
     Active Substance: SILVER SULFADIAZINE
     Dosage: FOR THE HANDS AND FEET 4 TIMES PER DAY

REACTIONS (8)
  - Foot operation [None]
  - Gait inability [None]
  - Pain [None]
  - Loss of personal independence in daily activities [None]
  - Blister [Recovered/Resolved]
  - Hyperkeratosis [Recovered/Resolved]
  - Hyperkeratosis [Recovered/Resolved]
  - Skin abrasion [None]

NARRATIVE: CASE EVENT DATE: 20220701
